FAERS Safety Report 24937533 (Version 2)
Quarter: 2025Q1

REPORT INFORMATION
  Report Type: Spontaneous
  Country: FR (occurrence: FR)
  Receive Date: 20250206
  Receipt Date: 20250306
  Transmission Date: 20250409
  Serious: Yes (Hospitalization)
  Sender: PFIZER
  Company Number: FR-GILEAD-2024-0678977

PATIENT
  Age: 51 Year
  Sex: Female
  Weight: 51 kg

DRUGS (36)
  1. CARBOPLATIN [Suspect]
     Active Substance: CARBOPLATIN
     Indication: Non-small cell lung cancer metastatic
     Route: 042
     Dates: start: 20240430, end: 20240430
  2. CARBOPLATIN [Suspect]
     Active Substance: CARBOPLATIN
     Route: 042
     Dates: start: 20240522, end: 20240522
  3. CARBOPLATIN [Suspect]
     Active Substance: CARBOPLATIN
     Route: 042
     Dates: start: 20240612, end: 20240612
  4. PEMETREXED [Suspect]
     Active Substance: PEMETREXED
     Indication: Non-small cell lung cancer metastatic
     Route: 042
     Dates: start: 20240430, end: 20240430
  5. PEMETREXED [Suspect]
     Active Substance: PEMETREXED
     Route: 042
     Dates: start: 20240522, end: 20240522
  6. PEMETREXED [Suspect]
     Active Substance: PEMETREXED
     Route: 042
     Dates: start: 20240612, end: 20240612
  7. ZIMBERELIMAB [Suspect]
     Active Substance: ZIMBERELIMAB
     Indication: Non-small cell lung cancer metastatic
     Route: 042
     Dates: start: 20240430, end: 20240430
  8. ZIMBERELIMAB [Suspect]
     Active Substance: ZIMBERELIMAB
     Route: 042
     Dates: start: 20240612, end: 20240612
  9. ZIMBERELIMAB [Suspect]
     Active Substance: ZIMBERELIMAB
     Route: 042
     Dates: start: 20240723, end: 20240723
  10. ZIMBERELIMAB [Suspect]
     Active Substance: ZIMBERELIMAB
     Route: 042
     Dates: start: 20240913, end: 20240913
  11. ZIMBERELIMAB [Suspect]
     Active Substance: ZIMBERELIMAB
     Route: 042
     Dates: start: 20241002, end: 20241002
  12. ZIMBERELIMAB [Suspect]
     Active Substance: ZIMBERELIMAB
     Route: 042
     Dates: start: 20241023, end: 20241023
  13. ZIMBERELIMAB [Suspect]
     Active Substance: ZIMBERELIMAB
     Route: 042
     Dates: start: 20241206, end: 20241206
  14. ZIMBERELIMAB [Suspect]
     Active Substance: ZIMBERELIMAB
     Route: 042
     Dates: start: 20241227, end: 20241227
  15. ZIMBERELIMAB [Suspect]
     Active Substance: ZIMBERELIMAB
     Route: 042
     Dates: start: 20250117, end: 20250117
  16. HYDROXYZINE [Concomitant]
     Active Substance: HYDROXYZINE HYDROCHLORIDE
     Indication: Dermatitis
     Route: 048
     Dates: start: 20240522
  17. PEGFILGRASTIM [Concomitant]
     Active Substance: PEGFILGRASTIM
     Indication: Prophylaxis
     Route: 058
     Dates: start: 20240501
  18. FOLIC ACID [Concomitant]
     Active Substance: FOLIC ACID
     Indication: Prophylaxis
     Route: 048
     Dates: start: 20240410
  19. IRBESARTAN [Concomitant]
     Active Substance: IRBESARTAN
     Indication: Hypertension
     Route: 048
     Dates: start: 2021
  20. COBAMAMIDE [Concomitant]
     Active Substance: COBAMAMIDE
     Indication: Premedication
     Route: 048
     Dates: start: 20240423
  21. PREDNISONE [Concomitant]
     Active Substance: PREDNISONE
     Indication: Premedication
     Route: 048
     Dates: start: 20240429
  22. PREDNISONE [Concomitant]
     Active Substance: PREDNISONE
     Indication: Arthralgia
     Route: 048
     Dates: start: 20241115
  23. DIPROSONE [Concomitant]
     Active Substance: BETAMETHASONE DIPROPIONATE
     Indication: Dermatitis
     Route: 003
     Dates: start: 20240522
  24. APREPITANT [Concomitant]
     Active Substance: APREPITANT
     Indication: Premedication
     Route: 048
     Dates: start: 20240430
  25. NEBIVOLOL [Concomitant]
     Active Substance: NEBIVOLOL
     Indication: Hypertension
     Route: 048
     Dates: start: 2021
  26. POLYETHYLENE GLYCOL 3350 [Concomitant]
     Active Substance: POLYETHYLENE GLYCOL 3350
     Indication: Prophylaxis
     Route: 048
     Dates: start: 20240410
  27. CETIRIZINE HYDROCHLORIDE [Concomitant]
     Active Substance: CETIRIZINE HYDROCHLORIDE
     Indication: Dermatitis
     Route: 048
     Dates: start: 20240522
  28. DARBEPOETIN ALFA [Concomitant]
     Active Substance: DARBEPOETIN ALFA
     Indication: Anaemia
     Route: 058
     Dates: start: 20240522
  29. METOCLOPRAMIDE [Concomitant]
     Active Substance: METOCLOPRAMIDE
     Indication: Prophylaxis
     Route: 048
     Dates: start: 20240410
  30. METOCLOPRAMIDE [Concomitant]
     Active Substance: METOCLOPRAMIDE
     Indication: Nausea
  31. PHLOROGLUCINOL [Concomitant]
     Active Substance: PHLOROGLUCINOL
     Indication: Prophylaxis
     Route: 048
     Dates: start: 20240410
  32. NICARDIPINE HYDROCHLORIDE [Concomitant]
     Active Substance: NICARDIPINE HYDROCHLORIDE
     Indication: Hypertension
     Route: 048
     Dates: start: 2021
  33. RACECADOTRIL [Concomitant]
     Active Substance: RACECADOTRIL
     Indication: Prophylaxis
     Route: 048
     Dates: start: 20240410
  34. LEVETIRACETAM [Concomitant]
     Active Substance: LEVETIRACETAM
     Indication: Epilepsy
     Route: 048
     Dates: start: 202402
  35. ACETAMINOPHEN [Concomitant]
     Active Substance: ACETAMINOPHEN
     Indication: Prophylaxis
     Route: 048
     Dates: start: 20240410
  36. ACETAMINOPHEN [Concomitant]
     Active Substance: ACETAMINOPHEN
     Indication: Arthralgia
     Dates: start: 20241009, end: 20241009

REACTIONS (2)
  - Postoperative wound infection [Recovered/Resolved]
  - Cranioplasty [Recovered/Resolved]

NARRATIVE: CASE EVENT DATE: 20240627
